FAERS Safety Report 6918821 (Version 3)
Quarter: 2018Q4

REPORT INFORMATION
  Report Type: Spontaneous
  Country: JP (occurrence: JP)
  Receive Date: 20090225
  Receipt Date: 20181101
  Transmission Date: 20190205
  Serious: Yes (Death, Hospitalization, Other)
  Sender: FDA-Public Use
  Company Number: PHHY2009JP06112

PATIENT
  Age: 27 Year
  Sex: Male

DRUGS (1)
  1. GLIVEC [Suspect]
     Active Substance: IMATINIB MESYLATE
     Indication: GASTROINTESTINAL STROMAL TUMOUR
     Dosage: UNK
     Route: 048
     Dates: start: 200701

REACTIONS (11)
  - Pleural effusion [Unknown]
  - Thoracic cavity drainage [Unknown]
  - Abdominal distension [Unknown]
  - Oedema peripheral [Unknown]
  - Acute respiratory failure [Unknown]
  - Oxygen therapy [Unknown]
  - Gait disturbance [Unknown]
  - Ascites [Unknown]
  - Cardio-respiratory arrest [Fatal]
  - Neoplasm progression [Unknown]
  - Soft tissue sarcoma [Fatal]

NARRATIVE: CASE EVENT DATE: 200809
